FAERS Safety Report 8597692-2 (Version None)
Quarter: 2012Q3

REPORT INFORMATION
  Report Type: 
  Country: None (occurrence: None)
  Receive Date: 20120816
  Receipt Date: 20120814
  Transmission Date: 20120928
  Serious: Yes (Other)
  Sender: FDA-Public Use
  Company Number: US-PFIZER INC-2012198970

PATIENT
  Sex: Female

DRUGS (2)
  1. PRISTIQ [Suspect]
     Indication: ANXIETY
  2. PRISTIQ [Suspect]
     Indication: DEPRESSION
     Dosage: 50 MG, UNK

REACTIONS (2)
  - PANIC ATTACK [None]
  - THINKING ABNORMAL [None]
